FAERS Safety Report 17480399 (Version 2)
Quarter: 2020Q1

REPORT INFORMATION
  Report Type: Spontaneous
  Country: US (occurrence: US)
  Receive Date: 20200228
  Receipt Date: 20200306
  Transmission Date: 20200409
  Serious: No
  Sender: FDA-Public Use
  Company Number: US-JNJFOC-20200228778

PATIENT
  Sex: Female

DRUGS (1)
  1. WOMENS ROGAINE [Suspect]
     Active Substance: MINOXIDIL
     Indication: ALOPECIA
     Dosage: BY DIRECTIONS TWICE A DAY
     Route: 061
     Dates: start: 202002, end: 202002

REACTIONS (1)
  - Application site scab [Recovered/Resolved]

NARRATIVE: CASE EVENT DATE: 202002
